FAERS Safety Report 14893825 (Version 1)
Quarter: 2018Q2

REPORT INFORMATION
  Report Type: Report from Study
  Country: CN (occurrence: CN)
  Receive Date: 20180514
  Receipt Date: 20180514
  Transmission Date: 20180711
  Serious: Yes (Hospitalization, Other)
  Sender: FDA-Public Use
  Company Number: CN-ROCHE-2114224

PATIENT
  Age: 67 Year
  Sex: Male
  Weight: 70 kg

DRUGS (1)
  1. AVASTIN [Suspect]
     Active Substance: BEVACIZUMAB
     Indication: RECTAL CANCER
     Route: 041
     Dates: start: 20170413

REACTIONS (6)
  - Diarrhoea [Unknown]
  - Ascites [Unknown]
  - Anal fistula [Unknown]
  - Gastroenteritis [Unknown]
  - Vomiting [Unknown]
  - Peritonitis [Unknown]

NARRATIVE: CASE EVENT DATE: 20180418
